FAERS Safety Report 8068828-7 (Version None)
Quarter: 2012Q1

REPORT INFORMATION
  Report Type: 
  Country: None (occurrence: None)
  Receive Date: 20120125
  Receipt Date: 20120123
  Transmission Date: 20120608
  Serious: Yes (Hospitalization)
  Sender: FDA-Public Use
  Company Number: US-BRISTOL-MYERS SQUIBB COMPANY-15567472

PATIENT
  Age: 57 Year
  Sex: Male

DRUGS (13)
  1. VITAMIN D [Concomitant]
     Indication: VITAMIN SUPPLEMENTATION
     Dosage: 1DF=500000UNITS
     Route: 048
  2. CALCIUM [Concomitant]
     Route: 048
  3. NOVOLOG [Suspect]
     Indication: TYPE 2 DIABETES MELLITUS
     Dosage: NOVOLOG 70.30 INSULIN 50 UNITS SQ BID,IF BS LESS THAN 30UNITS SQ
  4. BLINDED: PLACEBO [Suspect]
     Indication: TYPE 2 DIABETES MELLITUS
  5. GLUCOSAMINE [Concomitant]
     Indication: ARTHRALGIA
     Route: 048
  6. MELATONIN [Concomitant]
     Indication: INSOMNIA
     Route: 048
  7. GABAPENTIN [Concomitant]
     Indication: PHANTOM PAIN
     Route: 048
  8. COLACE [Concomitant]
     Indication: DIARRHOEA
     Route: 048
  9. NOVOLIN 70/30 [Concomitant]
     Dosage: REGULAR SLIDING SCALE BEFORE MEALS + BEDTIME
     Route: 058
     Dates: start: 20110204, end: 20110208
  10. CHONDROITIN [Concomitant]
     Indication: ARTHRALGIA
     Route: 048
  11. INSULIN [Concomitant]
     Dosage: 1DF=50UNIT
     Route: 058
  12. LISINOPRIL [Suspect]
     Route: 048
  13. BLINDED: SAXAGLIPTIN [Suspect]
     Indication: TYPE 2 DIABETES MELLITUS
     Dosage: 1DF=2.5MG OR 5MG
     Dates: start: 20101014

REACTIONS (2)
  - CHOLELITHIASIS [None]
  - PANCREATITIS [None]
